FAERS Safety Report 22886225 (Version 2)
Quarter: 2023Q4

REPORT INFORMATION
  Report Type: Spontaneous
  Country: US (occurrence: US)
  Receive Date: 20230831
  Receipt Date: 20231011
  Transmission Date: 20240110
  Serious: No
  Sender: FDA-Public Use
  Company Number: US-ABBVIE-5389139

PATIENT
  Sex: Female

DRUGS (1)
  1. ARMOUR THYROID [Suspect]
     Active Substance: THYROID, PORCINE
     Indication: Product used for unknown indication
     Dosage: 60 MILLIGRAM
     Route: 048
     Dates: start: 20230829

REACTIONS (11)
  - Joint swelling [Not Recovered/Not Resolved]
  - Nightmare [Unknown]
  - Mobility decreased [Unknown]
  - Unevaluable event [Unknown]
  - Thyroid hormones increased [Unknown]
  - Fear [Unknown]
  - Tremor [Unknown]
  - Adverse drug reaction [Unknown]
  - Fatigue [Unknown]
  - Aphasia [Unknown]
  - Musculoskeletal disorder [Unknown]

NARRATIVE: CASE EVENT DATE: 20230101
